FAERS Safety Report 6167681-6 (Version None)
Quarter: 2009Q2

REPORT INFORMATION
  Report Type: 
  Country: None (occurrence: None)
  Receive Date: 20090424
  Receipt Date: 20090414
  Transmission Date: 20091009
  Serious: Yes (Hospitalization)
  Sender: FDA-Public Use
  Company Number: JP-AMGEN-US339174

PATIENT
  Sex: Female
  Weight: 70 kg

DRUGS (14)
  1. ENBREL [Suspect]
     Indication: RHEUMATOID ARTHRITIS
     Route: 058
     Dates: start: 20080904, end: 20081104
  2. ENBREL [Suspect]
     Route: 058
     Dates: start: 20081105, end: 20090305
  3. PROGRAF [Concomitant]
     Route: 048
  4. PREDONINE [Concomitant]
     Route: 048
  5. PREDNISOLONE [Concomitant]
     Route: 048
  6. INFREE [Concomitant]
     Route: 048
  7. ISCOTIN [Concomitant]
     Route: 048
  8. BONALON [Concomitant]
     Route: 048
  9. OMEPRAL [Concomitant]
     Route: 048
  10. CELESTAMINE [Concomitant]
     Route: 048
  11. ACTOS [Concomitant]
     Route: 048
  12. POLYCARBOPHIL CALCIUM [Concomitant]
     Route: 048
  13. SALAZOSULFAPYRIDINE [Concomitant]
     Route: 048
  14. HIBON [Concomitant]
     Route: 048

REACTIONS (1)
  - MYELITIS [None]
